FAERS Safety Report 9386346 (Version 3)
Quarter: 2014Q3

REPORT INFORMATION
  Report Type: Report from Study
  Country: US (occurrence: US)
  Receive Date: 20130708
  Receipt Date: 20140708
  Transmission Date: 20150326
  Serious: Yes (Other)
  Sender: FDA-Public Use
  Company Number: US-BIOGENIDEC-2013BI058516

PATIENT
  Age: 41 Year
  Sex: Female

DRUGS (3)
  1. TYSABRI [Suspect]
     Active Substance: NATALIZUMAB
     Indication: MULTIPLE SCLEROSIS
     Route: 042
  2. TYSABRI [Suspect]
     Active Substance: NATALIZUMAB
     Indication: MULTIPLE SCLEROSIS
     Route: 042
     Dates: start: 20121024, end: 20131206
  3. TYSABRI [Suspect]
     Active Substance: NATALIZUMAB
     Indication: MULTIPLE SCLEROSIS
     Route: 042
     Dates: start: 20110923, end: 20111108

REACTIONS (9)
  - Blood pressure abnormal [Recovered/Resolved]
  - Convulsion [Not Recovered/Not Resolved]
  - Migraine [Not Recovered/Not Resolved]
  - Loss of consciousness [Recovered/Resolved]
  - Stress [Recovered/Resolved]
  - Heart rate increased [Recovered/Resolved]
  - Pain [Not Recovered/Not Resolved]
  - Status epilepticus [Recovered/Resolved]
  - Hypoaesthesia [Not Recovered/Not Resolved]

NARRATIVE: CASE EVENT DATE: 201306
